FAERS Safety Report 6398241-X (Version None)
Quarter: 2009Q4

REPORT INFORMATION
  Report Type: 
  Country: None (occurrence: None)
  Receive Date: 20091013
  Receipt Date: 20091005
  Transmission Date: 20100525
  Serious: Yes (Life-Threatening, Other)
  Sender: FDA-Public Use
  Company Number: PHHY2009CA41196

PATIENT
  Sex: Female

DRUGS (2)
  1. CO-DIOVAN T32564+ [Suspect]
     Indication: HYPERTENSION
     Dosage: 80/12.5 MG DAILY
     Route: 048
     Dates: start: 20080801, end: 20090901
  2. SALOFALK [Concomitant]
     Dosage: 2 DF, BID
     Route: 048

REACTIONS (6)
  - ADENOCARCINOMA PANCREAS [None]
  - HAEMATOMA [None]
  - POST PROCEDURAL COMPLICATION [None]
  - PROSTATIC DISORDER [None]
  - RESPIRATORY TRACT INFECTION [None]
  - SURGERY [None]
